FAERS Safety Report 20533714 (Version 3)
Quarter: 2022Q2

REPORT INFORMATION
  Report Type: Spontaneous
  Country: ES (occurrence: ES)
  Receive Date: 20220301
  Receipt Date: 20220413
  Transmission Date: 20220720
  Serious: Yes (Hospitalization)
  Sender: FDA-Public Use
  Company Number: ES-BoehringerIngelheim-2022-BI-155321

PATIENT
  Sex: Male
  Weight: 95.6 kg

DRUGS (10)
  1. PRADAXA [Suspect]
     Active Substance: DABIGATRAN ETEXILATE MESYLATE
     Indication: Arrhythmia
     Dates: end: 20220106
  2. PRADAXA [Suspect]
     Active Substance: DABIGATRAN ETEXILATE MESYLATE
     Dates: start: 202202, end: 20220217
  3. PRADAXA [Suspect]
     Active Substance: DABIGATRAN ETEXILATE MESYLATE
     Dates: start: 20220217, end: 20220223
  4. PRADAXA [Suspect]
     Active Substance: DABIGATRAN ETEXILATE MESYLATE
     Dosage: ONE CAPSULE. IN THE MORNING.
     Dates: start: 20220224, end: 20220224
  5. PRADAXA [Suspect]
     Active Substance: DABIGATRAN ETEXILATE MESYLATE
     Dosage: PHYSICIAN INDICATED PRADAXA 75 MG TWICE DAILY. PATIENT IS CONSIDERING ON HIS OWN INITIATIVE TO TAKE
     Dates: start: 20220406
  6. PRADAXA [Suspect]
     Active Substance: DABIGATRAN ETEXILATE MESYLATE
  7. ASPIRIN [Suspect]
     Active Substance: ASPIRIN
     Indication: Arrhythmia
     Dosage: PATIENT TOOK ADIRO INSTEAD OF PRADAXA. STOPPED FOR ONE WEEK APPROXIMATELY.
     Dates: start: 202202, end: 202203
  8. ASPIRIN [Suspect]
     Active Substance: ASPIRIN
     Dates: start: 202203, end: 20220406
  9. HEPARIN [Concomitant]
     Active Substance: HEPARIN SODIUM
     Indication: Arrhythmia
     Dates: start: 20220107, end: 20220113
  10. HEPARIN [Concomitant]
     Active Substance: HEPARIN SODIUM
     Dates: start: 20220118, end: 202202

REACTIONS (7)
  - Prostatic operation [Recovered/Resolved with Sequelae]
  - Productive cough [Recovered/Resolved]
  - Blood urine present [Recovered/Resolved]
  - Urinary incontinence [Not Recovered/Not Resolved]
  - Blood urine present [Recovered/Resolved]
  - Blood urine present [Recovered/Resolved]
  - Blood urine present [Recovered/Resolved]

NARRATIVE: CASE EVENT DATE: 20211201
